FAERS Safety Report 16337262 (Version 1)
Quarter: 2019Q2

REPORT INFORMATION
  Report Type: Spontaneous
  Country: US (occurrence: US)
  Receive Date: 20190416
  Receipt Date: 20190416
  Transmission Date: 20190711
  Serious: No
  Sender: FDA-Public Use
  Company Number: None

PATIENT
  Age: 68 Year
  Sex: Female
  Weight: 108.86 kg

DRUGS (3)
  1. STELARA [Suspect]
     Active Substance: USTEKINUMAB
     Indication: DERMATITIS ATOPIC
     Dosage: INJECT 90MG  SUBCUTANEOUSLY AT  WEEK 0 AND WEEK 4  AS DIRECTED
     Route: 058
     Dates: start: 201811
  2. STELARA [Suspect]
     Active Substance: USTEKINUMAB
     Indication: PSORIATIC ARTHROPATHY
     Dosage: INJECT 90MG  SUBCUTANEOUSLY AT  WEEK 0 AND WEEK 4  AS DIRECTED
     Route: 058
     Dates: start: 201811
  3. STELARA [Suspect]
     Active Substance: USTEKINUMAB
     Indication: PSORIASIS
     Dosage: INJECT 90MG  SUBCUTANEOUSLY AT  WEEK 0 AND WEEK 4  AS DIRECTED
     Route: 058
     Dates: start: 201811

REACTIONS (2)
  - Rash [None]
  - Condition aggravated [None]
